FAERS Safety Report 10448666 (Version 29)
Quarter: 2017Q1

REPORT INFORMATION
  Report Type: Report from Study
  Country: CA (occurrence: CA)
  Receive Date: 20140912
  Receipt Date: 20170208
  Transmission Date: 20170428
  Serious: Yes (Hospitalization, Other)
  Sender: FDA-Public Use
  Company Number: CA-ROCHE-1376532

PATIENT
  Age: 59 Year
  Sex: Female
  Weight: 57 kg

DRUGS (14)
  1. PERJETA [Suspect]
     Active Substance: PERTUZUMAB
     Route: 042
     Dates: start: 20140422
  2. ZOPICLONE [Concomitant]
     Active Substance: ZOPICLONE
  3. ELAVIL [Concomitant]
     Active Substance: AMITRIPTYLINE HYDROCHLORIDE
     Route: 065
  4. METOPROLOL. [Concomitant]
     Active Substance: METOPROLOL
  5. PERJETA [Suspect]
     Active Substance: PERTUZUMAB
     Indication: HER-2 POSITIVE BREAST CANCER
     Route: 042
     Dates: start: 20140401
  6. CURCUMIN [Concomitant]
     Active Substance: CURCUMIN
  7. HERCEPTIN [Suspect]
     Active Substance: TRASTUZUMAB
     Indication: PRODUCT USED FOR UNKNOWN INDICATION
     Route: 042
     Dates: start: 2006, end: 2007
  8. HERCEPTIN [Suspect]
     Active Substance: TRASTUZUMAB
     Route: 042
  9. TAXOL [Suspect]
     Active Substance: PACLITAXEL
     Route: 065
  10. TAXOL [Suspect]
     Active Substance: PACLITAXEL
     Indication: PRODUCT USED FOR UNKNOWN INDICATION
     Dosage: MEDICATION STOPPED ON UNKNOWN DATE
     Route: 065
     Dates: start: 2006
  11. TAMOXIFEN [Concomitant]
     Active Substance: TAMOXIFEN
  12. ALTACE [Concomitant]
     Active Substance: RAMIPRIL
  13. XGEVA [Concomitant]
     Active Substance: DENOSUMAB
  14. FASLODEX [Concomitant]
     Active Substance: FULVESTRANT

REACTIONS (28)
  - Weight decreased [Unknown]
  - Ill-defined disorder [Unknown]
  - Injection site discomfort [Unknown]
  - Blood pressure increased [Unknown]
  - Body temperature decreased [Unknown]
  - Paraesthesia [Not Recovered/Not Resolved]
  - Hypertension [Unknown]
  - Blood pressure systolic increased [Unknown]
  - Erythema [Unknown]
  - Gastric infection [Unknown]
  - Fatigue [Not Recovered/Not Resolved]
  - Hypotension [Unknown]
  - Peripheral coldness [Unknown]
  - Device related infection [Recovered/Resolved]
  - Oropharyngeal pain [Not Recovered/Not Resolved]
  - Weight increased [Not Recovered/Not Resolved]
  - Malaise [Unknown]
  - Nausea [Recovered/Resolved]
  - Headache [Not Recovered/Not Resolved]
  - Pain in extremity [Recovered/Resolved]
  - Insomnia [Unknown]
  - Gastric disorder [Unknown]
  - Cough [Not Recovered/Not Resolved]
  - Catheter site erythema [Unknown]
  - Infusion related reaction [Unknown]
  - Body temperature decreased [Unknown]
  - Nasopharyngitis [Not Recovered/Not Resolved]
  - Poor venous access [Not Recovered/Not Resolved]

NARRATIVE: CASE EVENT DATE: 201404
